FAERS Safety Report 8287140-4 (Version None)
Quarter: 2012Q2

REPORT INFORMATION
  Report Type: 
  Country: None (occurrence: None)
  Receive Date: 20120416
  Receipt Date: 20120410
  Transmission Date: 20120825
  Serious: Yes (Other)
  Sender: FDA-Public Use
  Company Number: US-ROCHE-784250

PATIENT
  Sex: Female
  Weight: 81.266 kg

DRUGS (6)
  1. PAXIL [Concomitant]
  2. PROVENTIL [Concomitant]
  3. ACCUTANE [Suspect]
     Indication: ACNE
     Route: 065
     Dates: start: 19980701, end: 19990101
  4. ACCUTANE [Suspect]
  5. PANCOF-HC [Concomitant]
  6. ACCUTANE [Suspect]
     Dates: start: 19990901, end: 19991001

REACTIONS (4)
  - STRESS [None]
  - DEPRESSION [None]
  - INFLAMMATORY BOWEL DISEASE [None]
  - COLITIS ULCERATIVE [None]
